FAERS Safety Report 8456644-3 (Version None)
Quarter: 2012Q2

REPORT INFORMATION
  Report Type: 
  Country: None (occurrence: None)
  Receive Date: 20120621
  Receipt Date: 20120619
  Transmission Date: 20120825
  Serious: Yes (Life-Threatening, Hospitalization, Other)
  Sender: FDA-Public Use
  Company Number: US-ROCHE-782645

PATIENT
  Sex: Male
  Weight: 110.4 kg

DRUGS (5)
  1. AVASTIN [Suspect]
     Indication: COLORECTAL CANCER
     Dosage: INTRAVENOUS OVER 30 - 90 MIN ON DAY 1, CYCLE-2 WEEKS, 12 CYCLES, LAST DOSE:07 SEP 2010
     Route: 042
  2. LEUCOVORIN CALCIUM [Suspect]
     Indication: COLORECTAL CANCER
     Dosage: IV OVER 2 HRS ON DAY 1
     Route: 042
  3. FLUOROURACIL [Suspect]
     Indication: COLORECTAL CANCER
     Dosage: 400 MG/M2 INTRAVENOUS BOLUS ON DAY 1 ,
     Route: 042
  4. OXALIPLATIN [Suspect]
     Indication: COLORECTAL CANCER
     Dosage: OVER 2 HOURS ON DAY 1
     Route: 042
  5. FLUOROURACIL [Suspect]
     Dosage: FOLLOWRD BY 5 FU 2.4 GM/M2 CIV OVER 46 HRS STARTING ON DAY 1
     Route: 042

REACTIONS (18)
  - IATROGENIC INJURY [None]
  - BLOOD CREATININE INCREASED [None]
  - HYPERURICAEMIA [None]
  - HYPERKALAEMIA [None]
  - HYPOTENSION [None]
  - DIARRHOEA [None]
  - SYNCOPE [None]
  - DECREASED APPETITE [None]
  - BLOOD PHOSPHORUS DECREASED [None]
  - CYSTITIS [None]
  - BLOOD URIC ACID DECREASED [None]
  - INTERNATIONAL NORMALISED RATIO INCREASED [None]
  - HYPOVOLAEMIA [None]
  - HYPOKALAEMIA [None]
  - HEART RATE DECREASED [None]
  - BLOOD MAGNESIUM DECREASED [None]
  - BLOOD PHOSPHORUS INCREASED [None]
  - RENAL FAILURE ACUTE [None]
